FAERS Safety Report 10426206 (Version 1)
Quarter: 2014Q3

REPORT INFORMATION
  Report Type: Spontaneous
  Country: GB (occurrence: GB)
  Receive Date: 20140903
  Receipt Date: 20140903
  Transmission Date: 20150326
  Serious: Yes (Other)
  Sender: FDA-Public Use
  Company Number: GB-RANBAXY-2014RR-84905

PATIENT
  Age: 35 Year
  Sex: Female

DRUGS (5)
  1. LEVOTHYROXINE [Concomitant]
     Active Substance: LEVOTHYROXINE
     Indication: PRODUCT USED FOR UNKNOWN INDICATION
     Dosage: UNK
     Route: 065
  2. PARACETAMOL [Concomitant]
     Active Substance: ACETAMINOPHEN
     Indication: PRODUCT USED FOR UNKNOWN INDICATION
     Dosage: COUPLE OF DOSES ON OCCASIONAL BASIS WHILE TAKING NAPROXEN.
     Route: 065
  3. NAPROXEN. [Suspect]
     Active Substance: NAPROXEN
     Indication: JOINT INJURY
     Dosage: 500 MG, BID
     Route: 048
     Dates: start: 20140609, end: 20140801
  4. COCODAMOL [Concomitant]
     Active Substance: ACETAMINOPHEN\CODEINE PHOSPHATE
     Indication: PRODUCT USED FOR UNKNOWN INDICATION
     Dosage: 2 DAYS FOLLOWING DENTAL EXTRACTION.
     Route: 065
     Dates: start: 20140701
  5. IBUPROFEN. [Concomitant]
     Active Substance: IBUPROFEN
     Indication: PRODUCT USED FOR UNKNOWN INDICATION
     Dosage: OCCASIONAL USE PRIOR TO PRESCRIPTION FOR NAPROXEN.
     Route: 065

REACTIONS (14)
  - Heart rate increased [Not Recovered/Not Resolved]
  - Pain [Recovering/Resolving]
  - Hemiparesis [Recovering/Resolving]
  - Anxiety [Recovered/Resolved]
  - Tearfulness [Recovering/Resolving]
  - Chest discomfort [Recovering/Resolving]
  - Fatigue [Recovering/Resolving]
  - Disturbance in attention [Recovered/Resolved]
  - Lethargy [Recovering/Resolving]
  - Musculoskeletal stiffness [Recovered/Resolved]
  - Coordination abnormal [Recovering/Resolving]
  - Gastritis [Recovering/Resolving]
  - Gastrooesophageal reflux disease [Recovering/Resolving]
  - Diarrhoea [Recovered/Resolved]

NARRATIVE: CASE EVENT DATE: 20140720
